FAERS Safety Report 12462495 (Version 1)
Quarter: 2016Q2

REPORT INFORMATION
  Report Type: Spontaneous
  Country: US (occurrence: US)
  Receive Date: 20160614
  Receipt Date: 20160614
  Transmission Date: 20160815
  Serious: Yes (Other)
  Sender: FDA-Public Use
  Company Number: PHHY2016US080168

PATIENT
  Age: 82 Year
  Sex: Female

DRUGS (1)
  1. ENOXAPARIN [Suspect]
     Active Substance: ENOXAPARIN
     Indication: ATRIAL FLUTTER
     Route: 065

REACTIONS (2)
  - Dermatitis bullous [Recovering/Resolving]
  - Condition aggravated [Recovering/Resolving]
